FAERS Safety Report 8733611 (Version 2)
Quarter: 2012Q4

REPORT INFORMATION
  Report Type: 
  Country: DK (occurrence: DK)
  Receive Date: 20120821
  Receipt Date: 20120828
  Transmission Date: 20130627
  Serious: Yes (Hospitalization)
  Sender: FDA-Public Use
  Company Number: DK-PFIZER INC-2012202953

PATIENT
  Age: 85 Year
  Sex: Female

DRUGS (7)
  1. CONTALGIN [Suspect]
     Indication: PAIN
     Dosage: UNK
     Dates: end: 20120725
  2. PRADAXA [Suspect]
     Indication: ATRIAL FIBRILLATION
     Dosage: 110 mg, 2x/day
     Dates: start: 20120713, end: 20120725
  3. DIGOXIN [Concomitant]
  4. DIURAL [Concomitant]
  5. KALEORID [Concomitant]
  6. HJERTEMAGNYL ^DAK^ [Concomitant]
     Dosage: UNK
  7. PANTOLOC [Concomitant]
     Dosage: UNK

REACTIONS (3)
  - Myoclonus [Recovered/Resolved]
  - International normalised ratio increased [Recovered/Resolved]
  - Encephalopathy [Unknown]
